FAERS Safety Report 18326739 (Version 2)
Quarter: 2020Q4

REPORT INFORMATION
  Report Type: Spontaneous
  Country: JP (occurrence: JP)
  Receive Date: 20200929
  Receipt Date: 20201020
  Transmission Date: 20210113
  Serious: Yes (Hospitalization, Other)
  Sender: FDA-Public Use
  Company Number: JP-FERRINGPH-2020FE06642

PATIENT
  Age: 83 Year
  Sex: Male

DRUGS (14)
  1. GONAX [Suspect]
     Active Substance: DEGARELIX
     Indication: PROSTATE CANCER
     Dosage: 80 MG, MONTHLY
     Route: 058
     Dates: start: 20200731, end: 20200823
  2. WARFARIN [Concomitant]
     Active Substance: WARFARIN
     Route: 048
  3. CANAGLU [Concomitant]
     Active Substance: CANAGLIFLOZIN
     Route: 048
  4. ARTIST [Concomitant]
     Active Substance: CARVEDILOL
     Route: 048
  5. EQUMET [Concomitant]
     Active Substance: METFORMIN HYDROCHLORIDE\VILDAGLIPTIN
     Route: 048
  6. DIART [Concomitant]
     Active Substance: AZOSEMIDE
     Route: 048
  7. FLUITRAN [Concomitant]
     Active Substance: TRICHLORMETHIAZIDE
     Route: 048
  8. MEVALOTIN [Concomitant]
     Active Substance: PRAVASTATIN SODIUM
     Route: 048
  9. GLIMEPIRIDE. [Concomitant]
     Active Substance: GLIMEPIRIDE
     Route: 048
  10. TANATRIL [Concomitant]
     Active Substance: IMIDAPRIL
     Route: 048
  11. ALDACTONE [Concomitant]
     Active Substance: SPIRONOLACTONE
     Route: 048
  12. PARIET [Concomitant]
     Active Substance: RABEPRAZOLE SODIUM
     Route: 048
  13. FEBURIC [Concomitant]
     Active Substance: FEBUXOSTAT
     Route: 048
  14. FERROUS CITRATE NA [Concomitant]
     Active Substance: SODIUM FERROUS CITRATE
     Route: 048

REACTIONS (1)
  - Cardiac failure [Unknown]

NARRATIVE: CASE EVENT DATE: 20200910
